FAERS Safety Report 7396058-0 (Version None)
Quarter: 2011Q2

REPORT INFORMATION
  Report Type: 
  Country: None (occurrence: None)
  Receive Date: 20110406
  Receipt Date: 20110325
  Transmission Date: 20111010
  Serious: Yes (Hospitalization)
  Sender: FDA-Public Use
  Company Number: FR-JNJFOC-20110306570

PATIENT
  Age: 63 Year
  Sex: Female

DRUGS (5)
  1. GOLIMUMAB [Suspect]
     Indication: RHEUMATOID ARTHRITIS
     Route: 058
  2. PARACETAMOL [Concomitant]
     Indication: RHEUMATOID ARTHRITIS
  3. ROZEX [Concomitant]
     Indication: DEPRESSION
  4. GOLIMUMAB [Suspect]
     Route: 058
  5. PAROXETINE HCL [Concomitant]
     Indication: DEPRESSION

REACTIONS (1)
  - PRURIGO [None]
